FAERS Safety Report 16477388 (Version 1)
Quarter: 2019Q2

REPORT INFORMATION
  Report Type: Spontaneous
  Country: FR (occurrence: FR)
  Receive Date: 20190626
  Receipt Date: 20190626
  Transmission Date: 20190711
  Serious: Yes (Death, Hospitalization)
  Sender: FDA-Public Use
  Company Number: FR-TEVA-2019-FR-1067505

PATIENT
  Age: 74 Year
  Sex: Male
  Weight: 90 kg

DRUGS (4)
  1. TIAPRIDE (CHLORHYDRATE DE) [Suspect]
     Active Substance: TIAPRIDE HYDROCHLORIDE
     Indication: MENTAL DISORDER
     Route: 048
     Dates: end: 20190601
  2. RISPERDAL [Suspect]
     Active Substance: RISPERIDONE
     Indication: MENTAL DISORDER
     Route: 048
     Dates: end: 20190601
  3. PARKINANE LP 2 MG, GELULE A LIBERATION PROLONGEE [Suspect]
     Active Substance: TRIHEXYPHENIDYL HYDROCHLORIDE
     Indication: PARKINSON^S DISEASE
     Route: 048
  4. ATORVASTATINE [Suspect]
     Active Substance: ATORVASTATIN
     Indication: CARDIOVASCULAR EVENT PROPHYLAXIS
     Route: 048

REACTIONS (7)
  - Dyspnoea [Fatal]
  - Cardio-respiratory arrest [Fatal]
  - Muscle spasms [Fatal]
  - Gait disturbance [Fatal]
  - Psychomotor skills impaired [Fatal]
  - General physical health deterioration [Fatal]
  - Respiratory distress [Fatal]

NARRATIVE: CASE EVENT DATE: 20190531
